FAERS Safety Report 19182006 (Version 2)
Quarter: 2021Q2

REPORT INFORMATION
  Report Type: Report from Study
  Country: IT (occurrence: IT)
  Receive Date: 20210427
  Receipt Date: 20210510
  Transmission Date: 20210717
  Serious: Yes (Other)
  Sender: FDA-Public Use
  Company Number: IT-GILEAD-2021-0526703

PATIENT
  Age: 50 Year
  Sex: Male

DRUGS (6)
  1. PRAVASTATINA SANDOZ [Concomitant]
     Dosage: GMBH 40 MG COMPRESSE
  2. DIBASE [Concomitant]
     Active Substance: CHOLECALCIFEROL
     Dosage: 10.000 U.I./ML GOCCE ORALI, SOLUZIONE
  3. OLEVIA [Concomitant]
     Active Substance: OMEGA-3-ACID ETHYL ESTERS
     Dosage: 1000 MG CAPSULE MOLLI
  4. DEURSIL [Concomitant]
     Active Substance: URSODIOL
     Dosage: 300 MG CAPSULE RIGIDE
  5. BICTEGRAVIR W/EMTRICITABINE/TENOFOVIR ALAFENAMIDE [Suspect]
     Active Substance: BICTEGRAVIR\EMTRICITABINE\TENOFOVIR ALAFENAMIDE
     Indication: ANTIRETROVIRAL THERAPY
     Dosage: 1 DOSAGE FORM, QD
     Route: 048
     Dates: start: 20200424, end: 20210116
  6. LANSOX [Concomitant]
     Active Substance: LANSOPRAZOLE
     Dosage: 30 MG COMPRESSE ORODISPERSIBILI

REACTIONS (4)
  - Sleep disorder [Recovering/Resolving]
  - Asthenia [Recovering/Resolving]
  - Major depression [Recovering/Resolving]
  - Nightmare [Recovering/Resolving]

NARRATIVE: CASE EVENT DATE: 20200901
